FAERS Safety Report 16542277 (Version 3)
Quarter: 2019Q3

REPORT INFORMATION
  Report Type: Spontaneous
  Country: DE (occurrence: DE)
  Receive Date: 20190708
  Receipt Date: 20190808
  Transmission Date: 20191004
  Serious: Yes (Hospitalization, Other)
  Sender: FDA-Public Use
  Company Number: PHHY2019DE154751

PATIENT
  Age: 27 Year
  Sex: Female
  Weight: 70 kg

DRUGS (2)
  1. ERELZI [Suspect]
     Active Substance: ETANERCEPT-SZZS
     Dosage: 1 DF, QW (1 DF DOSAGE FORM EVERY WEEKS)
     Route: 065
     Dates: start: 201803, end: 201904
  2. ERELZI [Suspect]
     Active Substance: ETANERCEPT-SZZS
     Indication: SPONDYLOARTHROPATHY
     Dosage: 1 DF, QD FOR EVERY WEEKS
     Route: 065

REACTIONS (11)
  - Allodynia [Not Recovered/Not Resolved]
  - Central nervous system lesion [Recovered/Resolved with Sequelae]
  - Central nervous system inflammation [Not Recovered/Not Resolved]
  - Visual impairment [Unknown]
  - Myelitis [Recovered/Resolved with Sequelae]
  - Immune-mediated adverse reaction [Unknown]
  - Paraplegia [Not Recovered/Not Resolved]
  - Paraesthesia [Not Recovered/Not Resolved]
  - Multiple sclerosis [Not Recovered/Not Resolved]
  - Pleocytosis [Unknown]
  - Pneumonia [Recovered/Resolved]

NARRATIVE: CASE EVENT DATE: 201904
